FAERS Safety Report 6180561-5 (Version None)
Quarter: 2009Q2

REPORT INFORMATION
  Report Type: 
  Country: None (occurrence: None)
  Receive Date: 20090506
  Receipt Date: 20090427
  Transmission Date: 20091009
  Serious: Yes (Other)
  Sender: FDA-Public Use
  Company Number: BR-BAYER-200914158LA

PATIENT
  Age: 39 Year
  Sex: Female

DRUGS (2)
  1. BETAFERON [Suspect]
     Indication: MULTIPLE SCLEROSIS
     Route: 058
     Dates: start: 20080601
  2. BETAFERON [Suspect]
     Route: 058

REACTIONS (15)
  - BACK PAIN [None]
  - CHILLS [None]
  - DEPRESSION [None]
  - DIARRHOEA [None]
  - EYE PAIN [None]
  - FATIGUE [None]
  - GAIT DISTURBANCE [None]
  - MULTIPLE SCLEROSIS [None]
  - NECK PAIN [None]
  - PARAESTHESIA [None]
  - PYREXIA [None]
  - SOMNOLENCE [None]
  - WEIGHT DECREASED [None]
  - WEIGHT INCREASED [None]
  - WHITE BLOOD CELL COUNT ABNORMAL [None]
